FAERS Safety Report 5282099-6 (Version None)
Quarter: 2007Q1

REPORT INFORMATION
  Report Type: 
  Country: None (occurrence: None)
  Receive Date: 20070330
  Receipt Date: 20070221
  Transmission Date: 20070707
  Serious: Yes (Hospitalization, Other)
  Sender: FDA-Public Use
  Company Number: US-PFIZER INC-2006116145

PATIENT
  Sex: Female
  Weight: 69.4 kg

DRUGS (14)
  1. BEXTRA [Suspect]
     Indication: PAIN
     Route: 048
  2. BEXTRA [Suspect]
     Indication: INFLAMMATION
  3. BEXTRA [Suspect]
     Indication: OSTEOARTHRITIS
  4. BEXTRA [Suspect]
     Indication: ARTHRITIS
  5. VIOXX [Concomitant]
     Route: 048
  6. PLAVIX [Concomitant]
     Route: 048
  7. ATENOLOL [Concomitant]
     Route: 048
  8. LASIX [Concomitant]
     Route: 048
  9. LOTENSIN [Concomitant]
     Route: 048
  10. ZOCOR [Concomitant]
     Route: 048
  11. XANAX [Concomitant]
     Route: 048
  12. DITROPAN [Concomitant]
     Route: 048
  13. ACCUPRIL [Concomitant]
     Route: 048
  14. LESCOL [Concomitant]
     Route: 048

REACTIONS (2)
  - BLINDNESS [None]
  - CEREBROVASCULAR ACCIDENT [None]
